FAERS Safety Report 12309788 (Version 1)
Quarter: 2016Q2

REPORT INFORMATION
  Report Type: Spontaneous
  Country: US (occurrence: None)
  Receive Date: 20160426
  Receipt Date: 20160426
  Transmission Date: 20160815
  Serious: Yes (Life-Threatening, Hospitalization, Disabling, Congenital Anomaly)
  Sender: FDA-Public Use
  Company Number: None

PATIENT
  Age: 0 Day
  Sex: Male
  Weight: 17.24 kg

DRUGS (9)
  1. SINGULAIR/MONTELUKAST [Concomitant]
  2. ALBUTORAL INHALER [Concomitant]
  3. ALBUTORAL IN NEBULIZER [Concomitant]
  4. QVAR [Concomitant]
     Active Substance: BECLOMETHASONE DIPROPIONATE
  5. MIRALAX [Concomitant]
     Active Substance: POLYETHYLENE GLYCOL 3350
  6. MULTIVITAMIN [Concomitant]
     Active Substance: VITAMINS
  7. ONDANSETRON [Suspect]
     Active Substance: ONDANSETRON
     Indication: VOMITING
     Route: 060
     Dates: start: 20110730, end: 20120406
  8. TRIAMCINOLONE [Concomitant]
     Active Substance: TRIAMCINOLONE
  9. ONDANSETRON [Suspect]
     Active Substance: ONDANSETRON
     Indication: NAUSEA
     Route: 060
     Dates: start: 20110730, end: 20120406

REACTIONS (4)
  - Patent ductus arteriosus [None]
  - Maternal drugs affecting foetus [None]
  - Cardiac murmur [None]
  - Congenital cystic lung [None]

NARRATIVE: CASE EVENT DATE: 20120406
